FAERS Safety Report 5910565-6 (Version None)
Quarter: 2008Q4

REPORT INFORMATION
  Report Type: 
  Country: None (occurrence: None)
  Receive Date: 20081007
  Receipt Date: 20080321
  Transmission Date: 20090506
  Serious: No
  Sender: FDA-Public Use
  Company Number: US-ASTRAZENECA-2008UW05777

PATIENT
  Age: 79 Year
  Sex: Female
  Weight: 81.2 kg

DRUGS (5)
  1. ARIMIDEX [Suspect]
     Indication: BREAST CANCER
     Route: 048
  2. SYNTHROID [Concomitant]
  3. COZAAR [Concomitant]
  4. LIPITOR [Concomitant]
  5. OS CAL [Concomitant]

REACTIONS (1)
  - HAIR GROWTH ABNORMAL [None]
